FAERS Safety Report 24193685 (Version 1)
Quarter: 2024Q3

REPORT INFORMATION
  Report Type: Spontaneous
  Country: JP (occurrence: JP)
  Receive Date: 20240809
  Receipt Date: 20240809
  Transmission Date: 20241016
  Serious: Yes (Hospitalization)
  Sender: PANACEA BIOTEC
  Company Number: JP-PBT-009622

PATIENT
  Sex: Female

DRUGS (17)
  1. TACROLIMUS [Interacting]
     Active Substance: TACROLIMUS
     Indication: Prophylaxis against transplant rejection
     Dosage: TWO CAPSULES OF 1.0 MG AND ONE CAPSULE OF 0.5 MG, AFTER BREAKFAST
     Route: 065
  2. MYCOPHENOLATE MOFETIL [Suspect]
     Active Substance: MYCOPHENOLATE MOFETIL
     Indication: Prophylaxis against transplant rejection
     Dosage: AFTER BREAKFAST AND DINNER
     Route: 065
  3. NIRMATRELVIR\RITONAVIR [Interacting]
     Active Substance: NIRMATRELVIR\RITONAVIR
     Indication: COVID-19
     Dosage: NIRMATRELVIR 300 MG, RITONAVIR 100 MG
     Route: 065
  4. BISOPROLOL FUMARATE [Suspect]
     Active Substance: BISOPROLOL FUMARATE
     Indication: Product used for unknown indication
     Dosage: 1.5 TABLET, AFTER BREAKFAST
     Route: 065
  5. AMLODIPINE BESYLATE [Suspect]
     Active Substance: AMLODIPINE BESYLATE
     Indication: Product used for unknown indication
     Dosage: ONE ORAL DISSOLVE TABLET, AFTER BREAKFAST
     Route: 048
  6. RABEPRAZOLE SODIUM [Suspect]
     Active Substance: RABEPRAZOLE SODIUM
     Indication: Product used for unknown indication
     Dosage: AFTER BREAKFAST
     Route: 065
  7. PREDNISOLONE [Suspect]
     Active Substance: PREDNISOLONE
     Indication: Prophylaxis against transplant rejection
     Dosage: AFTER BREAKFAST
     Route: 065
  8. POLAPREZINC [Suspect]
     Active Substance: POLAPREZINC
     Indication: Product used for unknown indication
     Dosage: ONE TABLET EACH, BID, AFTER BREAKFAST AND DINNER
     Route: 065
  9. CALCIUM POLYSTYRENE SULFONATE [Suspect]
     Active Substance: CALCIUM POLYSTYRENE SULFONATE
     Indication: Product used for unknown indication
     Dosage: 20% 25 G ONE PACK, AFTER LUNCH
     Route: 065
  10. ATOVAQUONE [Suspect]
     Active Substance: ATOVAQUONE
     Indication: Product used for unknown indication
     Dosage: 15% 750 MG (ONE PACK, AFTER BREAKFAST)
     Route: 065
  11. PANTOTHENIC ACID [Suspect]
     Active Substance: PANTOTHENIC ACID
     Indication: Product used for unknown indication
     Dosage: AFTER BREAKFAST AND DINNER
     Route: 065
  12. MAGNESIUM OXIDE [Suspect]
     Active Substance: MAGNESIUM OXIDE
     Indication: Product used for unknown indication
     Dosage: AFTER BREAKFAST AND DINNER
     Route: 065
  13. EPRAZINONE HYDROCHLORIDE [Suspect]
     Active Substance: EPRAZINONE HYDROCHLORIDE
     Indication: Product used for unknown indication
     Dosage: AFTER MEAL
     Route: 065
  14. TRANEXAMIC ACID [Suspect]
     Active Substance: TRANEXAMIC ACID
     Indication: Product used for unknown indication
     Dosage: AFTER MEAL
     Route: 065
  15. CARBOCYSTEINE [Suspect]
     Active Substance: CARBOCYSTEINE
     Indication: Product used for unknown indication
     Dosage: AFTER MEAL
     Route: 065
  16. PREGABALIN [Suspect]
     Active Substance: PREGABALIN
     Indication: Product used for unknown indication
     Dosage: ONE ORAL DISSOLVE EACH, AFTER?BREAKFAST AND DINNER
     Route: 048
  17. ALFACALCIDOL [Suspect]
     Active Substance: ALFACALCIDOL
     Indication: Product used for unknown indication
     Dosage: AFTER BREAKFAST
     Route: 065

REACTIONS (4)
  - COVID-19 [Unknown]
  - Product use in unapproved indication [Unknown]
  - Drug interaction [Unknown]
  - Drug level increased [Recovered/Resolved]
